FAERS Safety Report 8154709-7 (Version None)
Quarter: 2012Q1

REPORT INFORMATION
  Report Type: 
  Country: None (occurrence: None)
  Receive Date: 20120221
  Receipt Date: 20120213
  Transmission Date: 20120608
  Serious: Yes (Hospitalization)
  Sender: FDA-Public Use
  Company Number: US-US-EMD SERONO, INC.-7076018

PATIENT
  Sex: Female
  Weight: 78 kg

DRUGS (15)
  1. ACYCLOVIR [Concomitant]
     Dates: start: 20110310
  2. VORICONAZOLE [Concomitant]
     Dates: start: 20110924
  3. NOVANTRONE [Suspect]
     Dates: start: 20110830
  4. LEVOFLOXACIN [Concomitant]
     Dates: end: 20111028
  5. ETOPOSIDE [Suspect]
     Indication: ACUTE MYELOID LEUKAEMIA
     Route: 042
     Dates: start: 20110629, end: 20110703
  6. LEVAQUIN [Concomitant]
     Dates: start: 20110310, end: 20110708
  7. DAPSONE [Concomitant]
     Dates: start: 20110630
  8. MICAFUNGIN SODIUM [Concomitant]
     Dates: start: 20110925
  9. CYTARABINE [Suspect]
     Indication: ACUTE MYELOID LEUKAEMIA
     Route: 042
     Dates: start: 20110629, end: 20110703
  10. POSACONAZOLE [Concomitant]
     Dates: end: 20110708
  11. MDX-1338 [Suspect]
     Indication: ACUTE MYELOID LEUKAEMIA
     Route: 042
     Dates: start: 20110629, end: 20110629
  12. FLUCONAZOLE [Concomitant]
     Dates: start: 20110629, end: 20110925
  13. CARVEDILOL [Concomitant]
  14. NOVANTRONE [Suspect]
     Indication: ACUTE MYELOID LEUKAEMIA
     Dates: start: 20110629, end: 20110703
  15. TEMSIROLIMUS [Concomitant]

REACTIONS (7)
  - STAPHYLOCOCCUS TEST POSITIVE [None]
  - SYNCOPE [None]
  - FUNGAL INFECTION [None]
  - BACTERIAL TEST POSITIVE [None]
  - PNEUMONIA FUNGAL [None]
  - FEBRILE NEUTROPENIA [None]
  - MUCOSAL INFLAMMATION [None]
